FAERS Safety Report 6541798-6 (Version None)
Quarter: 2010Q1

REPORT INFORMATION
  Report Type: 
  Country: None (occurrence: None)
  Receive Date: 20100119
  Receipt Date: 20100108
  Transmission Date: 20100710
  Serious: Yes (Other)
  Sender: FDA-Public Use
  Company Number: PHEH2010US00532

PATIENT
  Sex: Female

DRUGS (2)
  1. RECLAST [Suspect]
     Dosage: UNK, ONCE/SINGLE USE
  2. RECLAST [Suspect]
     Dosage: UNK, ONCE/SINGLE USE

REACTIONS (1)
  - ARTHROPATHY [None]
